FAERS Safety Report 7641642-X (Version None)
Quarter: 2011Q3

REPORT INFORMATION
  Report Type: 
  Country: None (occurrence: None)
  Receive Date: 20110728
  Receipt Date: 20110708
  Transmission Date: 20111222
  Serious: Yes (Death)
  Sender: FDA-Public Use
  Company Number: US-GLAXOSMITHKLINE-A0869254A

PATIENT
  Age: 60 Year
  Sex: Male
  Weight: 65.9 kg

DRUGS (4)
  1. AVANDIA [Suspect]
     Indication: TYPE 2 DIABETES MELLITUS
     Dosage: 4MG TWICE PER DAY
     Route: 048
     Dates: start: 20000801, end: 20070101
  2. METFORMIN HCL [Concomitant]
  3. INSULIN [Concomitant]
  4. MAVIK [Concomitant]

REACTIONS (3)
  - CARDIAC FAILURE CONGESTIVE [None]
  - ARRHYTHMIA [None]
  - MYOCARDIAL INFARCTION [None]
